FAERS Safety Report 15328090 (Version 3)
Quarter: 2018Q4

REPORT INFORMATION
  Report Type: Report from Study
  Country: US (occurrence: US)
  Receive Date: 20180828
  Receipt Date: 20181106
  Transmission Date: 20190204
  Serious: Yes (Other)
  Sender: FDA-Public Use
  Company Number: PHEH2018US035220

PATIENT
  Sex: Female

DRUGS (1)
  1. AFINITOR [Suspect]
     Active Substance: EVEROLIMUS
     Indication: ANGIOMYOLIPOMA
     Dosage: 10 MG, QD
     Route: 048
     Dates: start: 20180622

REACTIONS (9)
  - Pain [Recovering/Resolving]
  - Alveolar osteitis [Unknown]
  - Pyrexia [Unknown]
  - Tooth impacted [Unknown]
  - Oropharyngeal pain [Unknown]
  - Malaise [Unknown]
  - Haemorrhage [Unknown]
  - Vomiting [Unknown]
  - Swelling face [Unknown]
